FAERS Safety Report 14561491 (Version 1)
Quarter: 2018Q1

REPORT INFORMATION
  Report Type: Spontaneous
  Country: US (occurrence: US)
  Receive Date: 20180222
  Receipt Date: 20180222
  Transmission Date: 20180509
  Serious: No
  Sender: FDA-Public Use
  Company Number: US-BRISTOL-MYERS SQUIBB COMPANY-BMS-2018-015481

PATIENT
  Sex: Male

DRUGS (1)
  1. ELIQUIS [Suspect]
     Active Substance: APIXABAN
     Indication: CEREBROVASCULAR ACCIDENT PROPHYLAXIS
     Dosage: 5 MG, BID
     Route: 048

REACTIONS (8)
  - Toothache [Unknown]
  - Asthenia [Unknown]
  - Puncture site haemorrhage [Unknown]
  - Teeth brittle [Unknown]
  - Alveolar osteitis [Unknown]
  - Dizziness [Unknown]
  - Gastric disorder [Unknown]
  - Tooth disorder [Unknown]
